FAERS Safety Report 6914532-5 (Version None)
Quarter: 2010Q3

REPORT INFORMATION
  Report Type: 
  Country: None (occurrence: None)
  Receive Date: 20100809
  Receipt Date: 20100803
  Transmission Date: 20110219
  Serious: No
  Sender: FDA-Public Use
  Company Number: US-SHIRE-SPV1-2010-01116

PATIENT

DRUGS (4)
  1. INTUNIV [Suspect]
     Indication: ATTENTION DEFICIT/HYPERACTIVITY DISORDER
     Dosage: 1 MG, ONE DOSE
     Route: 048
     Dates: start: 20100615, end: 20100615
  2. INTUNIV [Suspect]
     Indication: ASPERGER'S DISORDER
  3. FOCALIN [Concomitant]
     Indication: ATTENTION DEFICIT/HYPERACTIVITY DISORDER
     Dosage: 20 MG, 2X/DAY:BID
     Route: 048
     Dates: start: 20060101
  4. FOCALIN [Concomitant]
     Indication: ASPERGER'S DISORDER

REACTIONS (1)
  - TIC [None]
